FAERS Safety Report 5888703-3 (Version None)
Quarter: 2008Q3

REPORT INFORMATION
  Report Type: 
  Country: None (occurrence: None)
  Receive Date: 20080917
  Receipt Date: 20080910
  Transmission Date: 20090109
  Serious: Yes (Hospitalization)
  Sender: FDA-Public Use
  Company Number: 2008SP018679

PATIENT
  Age: 55 Year
  Sex: Male
  Weight: 59 kg

DRUGS (2)
  1. PEG-INTRON [Suspect]
     Indication: HEPATITIS C VIRUS TEST
     Dosage: 0.5 ML; QW
     Dates: start: 20070723, end: 20071016
  2. RIBAVIRIN [Suspect]
     Indication: HEPATITIS C VIRUS TEST
     Dosage: 4 DF; QD
     Dates: start: 20070723, end: 20071016

REACTIONS (1)
  - PULMONARY TUBERCULOSIS [None]
